FAERS Safety Report 5770856-9 (Version None)
Quarter: 2008Q2

REPORT INFORMATION
  Report Type: 
  Country: None (occurrence: None)
  Receive Date: 20080613
  Receipt Date: 20080529
  Transmission Date: 20081010
  Serious: No
  Sender: FDA-Public Use
  Company Number: US-ABBOTT-08P-163-0452645-00

PATIENT
  Sex: Female
  Weight: 54.48 kg

DRUGS (8)
  1. HUMIRA [Suspect]
     Indication: RHEUMATOID ARTHRITIS
     Route: 058
  2. HUMIRA [Suspect]
     Route: 058
  3. ANTIBIOTICS [Concomitant]
     Indication: DRUG USE FOR UNKNOWN INDICATION
  4. RISEDRONATE SODIUM [Concomitant]
     Indication: OSTEOPOROSIS
     Route: 048
     Dates: start: 20070101
  5. ROSUVASTATIN [Concomitant]
     Indication: BLOOD CHOLESTEROL INCREASED
     Route: 048
  6. REGULAR INSULIN [Concomitant]
     Indication: TYPE 1 DIABETES MELLITUS
     Route: 058
  7. ISOPHANE INSULIN [Concomitant]
     Indication: TYPE 1 DIABETES MELLITUS
     Route: 058
  8. UNKNOWN MEDICATION [Concomitant]
     Indication: DRUG USE FOR UNKNOWN INDICATION
     Route: 045

REACTIONS (8)
  - ARTHRALGIA [None]
  - DIARRHOEA [None]
  - DRUG DOSE OMISSION [None]
  - JOINT SWELLING [None]
  - OEDEMA PERIPHERAL [None]
  - PAIN [None]
  - SWELLING FACE [None]
  - UNDERDOSE [None]
